FAERS Safety Report 13653485 (Version 1)
Quarter: 2017Q2

REPORT INFORMATION
  Report Type: Spontaneous
  Country: US (occurrence: US)
  Receive Date: 20170614
  Receipt Date: 20170614
  Transmission Date: 20170830
  Serious: No
  Sender: FDA-Public Use
  Company Number: US-ROCHE-1325459

PATIENT
  Sex: Male

DRUGS (6)
  1. AMLODIPINE [Concomitant]
     Active Substance: AMLODIPINE BESYLATE
  2. OMEPRAZOLE. [Concomitant]
     Active Substance: OMEPRAZOLE
  3. XELODA [Suspect]
     Active Substance: CAPECITABINE
     Indication: COLON CANCER
     Dosage: 3 TABLETS BID, 14 DAYS ON FOLLOWED BY 7 DAYS OFF
     Route: 048
     Dates: start: 20131122
  4. HYDROCHLOROTHIAZIDE. [Concomitant]
     Active Substance: HYDROCHLOROTHIAZIDE
  5. CELEXA [Concomitant]
     Active Substance: CITALOPRAM HYDROBROMIDE
  6. WARFARIN [Concomitant]
     Active Substance: WARFARIN

REACTIONS (1)
  - Fatigue [Unknown]
